FAERS Safety Report 22365321 (Version 1)
Quarter: 2023Q2

REPORT INFORMATION
  Report Type: Spontaneous
  Country: BR (occurrence: BR)
  Receive Date: 20230525
  Receipt Date: 20230525
  Transmission Date: 20230722
  Serious: Yes (Other)
  Sender: FDA-Public Use
  Company Number: BR-CHEPLA-2023006053

PATIENT
  Age: 25 Year
  Sex: Male

DRUGS (4)
  1. FLUNITRAZEPAM [Suspect]
     Active Substance: FLUNITRAZEPAM
     Indication: Insomnia
     Dosage: 1 MG PER DAY
     Route: 048
     Dates: start: 20230505
  2. FLUNITRAZEPAM [Suspect]
     Active Substance: FLUNITRAZEPAM
     Indication: Insomnia
     Dosage: ...HE HAS BEEN TAKING FLUNITRAZEPAM (ROHYPNOL) FOR APPROXIMATELY FOUR YEARS
  3. CLONAZEPAM [Suspect]
     Active Substance: CLONAZEPAM
     Dosage: ON MAY 13, 2023 AND MAY 14, 2023 HE TOOK 2MG OF CLONAZEPAM ALONG WITH ROHYPNOL
     Dates: start: 20230513, end: 20230514
  4. DIPYRONE [Suspect]
     Active Substance: DIPYRONE

REACTIONS (8)
  - Drug ineffective [Unknown]
  - Heart rate increased [Recovered/Resolved]
  - Skin discolouration [Not Recovered/Not Resolved]
  - Suspected product quality issue [Unknown]
  - Drug interaction [Unknown]
  - Headache [Unknown]
  - Nervousness [Unknown]
  - Product use in unapproved indication [Unknown]

NARRATIVE: CASE EVENT DATE: 20230501
